FAERS Safety Report 24545486 (Version 5)
Quarter: 2025Q2

REPORT INFORMATION
  Report Type: Spontaneous
  Country: CN (occurrence: CN)
  Receive Date: 20241024
  Receipt Date: 20250612
  Transmission Date: 20250717
  Serious: Yes (Hospitalization, Other)
  Sender: PFIZER
  Company Number: CN-PFIZER INC-PV202400136723

PATIENT
  Age: 27 Year
  Sex: Male

DRUGS (30)
  1. XYNTHA [Suspect]
     Active Substance: MOROCTOCOG ALFA
     Indication: Factor VIII deficiency
     Route: 040
     Dates: start: 20240729
  2. XYNTHA [Suspect]
     Active Substance: MOROCTOCOG ALFA
     Dosage: 2500 IU, 2X/DAY
     Route: 040
     Dates: start: 20240730
  3. XYNTHA [Suspect]
     Active Substance: MOROCTOCOG ALFA
     Dosage: 3000 IU, 2X/DAY
     Route: 040
     Dates: start: 20240805
  4. XYNTHA [Suspect]
     Active Substance: MOROCTOCOG ALFA
     Route: 040
     Dates: start: 20240808
  5. XYNTHA [Suspect]
     Active Substance: MOROCTOCOG ALFA
     Dosage: 3000 IU, 1X/DAY
     Route: 040
     Dates: start: 20240816
  6. XYNTHA [Suspect]
     Active Substance: MOROCTOCOG ALFA
     Route: 040
     Dates: start: 20240819
  7. XYNTHA [Suspect]
     Active Substance: MOROCTOCOG ALFA
     Dosage: 2000 IU, 2X/DAY
     Route: 040
     Dates: start: 20240820
  8. XYNTHA [Suspect]
     Active Substance: MOROCTOCOG ALFA
     Route: 040
     Dates: start: 20240822
  9. XYNTHA [Suspect]
     Active Substance: MOROCTOCOG ALFA
     Route: 042
     Dates: start: 20240905
  10. XYNTHA [Suspect]
     Active Substance: MOROCTOCOG ALFA
     Route: 042
     Dates: start: 20240906
  11. XYNTHA [Suspect]
     Active Substance: MOROCTOCOG ALFA
     Dosage: 2000 IU, 2X/DAY (Q12H)
     Route: 042
     Dates: start: 20240906
  12. XYNTHA [Suspect]
     Active Substance: MOROCTOCOG ALFA
     Dosage: 2000 IU, 1X/DAY
     Route: 042
     Dates: start: 20240920
  13. XYNTHA [Suspect]
     Active Substance: MOROCTOCOG ALFA
     Route: 042
     Dates: start: 20240920
  14. XYNTHA [Suspect]
     Active Substance: MOROCTOCOG ALFA
     Dosage: 2000 IU, 1X/DAY
     Route: 042
     Dates: start: 20241014
  15. XYNTHA [Suspect]
     Active Substance: MOROCTOCOG ALFA
     Dosage: 4000 IU, QD
     Route: 040
     Dates: start: 20241023
  16. XYNTHA [Suspect]
     Active Substance: MOROCTOCOG ALFA
     Dosage: 2000 IU, ALTERNATE DAY
     Route: 042
     Dates: start: 20241111
  17. XYNTHA [Suspect]
     Active Substance: MOROCTOCOG ALFA
     Dosage: 2000 IU, QOD
     Route: 042
     Dates: start: 20241113
  18. XYNTHA [Suspect]
     Active Substance: MOROCTOCOG ALFA
     Dosage: 2000 IU, 1X/DAY
     Route: 042
     Dates: start: 20241113
  19. XYNTHA [Suspect]
     Active Substance: MOROCTOCOG ALFA
     Dates: start: 20241113
  20. XYNTHA [Suspect]
     Active Substance: MOROCTOCOG ALFA
     Route: 040
     Dates: start: 20241119
  21. XYNTHA [Suspect]
     Active Substance: MOROCTOCOG ALFA
     Route: 042
     Dates: start: 20241124
  22. XYNTHA [Suspect]
     Active Substance: MOROCTOCOG ALFA
     Route: 042
     Dates: start: 20241128
  23. XYNTHA [Suspect]
     Active Substance: MOROCTOCOG ALFA
     Route: 042
     Dates: start: 20241208
  24. XYNTHA [Suspect]
     Active Substance: MOROCTOCOG ALFA
     Dosage: 2500 IU, BID
     Route: 042
     Dates: start: 20241217
  25. XYNTHA [Suspect]
     Active Substance: MOROCTOCOG ALFA
     Dosage: 2000 IU, BID
     Route: 042
     Dates: start: 20250331
  26. XYNTHA [Suspect]
     Active Substance: MOROCTOCOG ALFA
     Dosage: 4000 IU, QD
     Route: 042
     Dates: start: 20250516
  27. XYNTHA [Suspect]
     Active Substance: MOROCTOCOG ALFA
     Dosage: 2000 IU, QOD
     Route: 040
     Dates: start: 20250519
  28. XYNTHA [Suspect]
     Active Substance: MOROCTOCOG ALFA
     Route: 040
     Dates: start: 20250519
  29. XYNTHA [Suspect]
     Active Substance: MOROCTOCOG ALFA
     Dosage: 2000 IU, QOD
     Route: 040
     Dates: start: 20250525
  30. XYNTHA [Suspect]
     Active Substance: MOROCTOCOG ALFA
     Dosage: 5000 IU, QD
     Route: 040
     Dates: start: 20250528

REACTIONS (6)
  - Arthralgia [Recovering/Resolving]
  - Joint range of motion decreased [Not Recovered/Not Resolved]
  - Gait disturbance [Unknown]
  - Contusion [Unknown]
  - Ecchymosis [Unknown]
  - Joint swelling [Recovering/Resolving]

NARRATIVE: CASE EVENT DATE: 20240901
